FAERS Safety Report 5207839-3 (Version None)
Quarter: 2007Q1

REPORT INFORMATION
  Report Type: 
  Country: None (occurrence: None)
  Receive Date: 20070112
  Receipt Date: 20070102
  Transmission Date: 20070707
  Serious: Yes (Hospitalization)
  Sender: FDA-Public Use
  Company Number: FR-PFIZER INC-2007001946

PATIENT
  Age: 60 Year
  Sex: Male
  Weight: 70 kg

DRUGS (4)
  1. CELEBREX [Suspect]
     Indication: ARTHRALGIA
     Route: 048
     Dates: start: 20060904, end: 20061002
  2. APROVEL [Concomitant]
     Route: 048
  3. LANTUS [Concomitant]
     Route: 058
  4. GLUCOPHAGE [Concomitant]
     Route: 048
     Dates: end: 20060929

REACTIONS (6)
  - ARTHRALGIA [None]
  - EOSINOPHILIA [None]
  - HEPATIC ENZYME INCREASED [None]
  - PYREXIA [None]
  - RASH MACULO-PAPULAR [None]
  - THROMBOCYTOPENIA [None]
